FAERS Safety Report 24748693 (Version 3)
Quarter: 2025Q1

REPORT INFORMATION
  Report Type: Spontaneous
  Country: DE (occurrence: DE)
  Receive Date: 20241218
  Receipt Date: 20250224
  Transmission Date: 20250409
  Serious: Yes (Other)
  Sender: BOEHRINGER INGELHEIM
  Company Number: DE-Komodo Health-a23aa000004obuvAAA

PATIENT
  Age: 71 Year
  Sex: Female
  Weight: 97.0 kg

DRUGS (12)
  1. JARDIANCE [Suspect]
     Active Substance: EMPAGLIFLOZIN
     Indication: Type 2 diabetes mellitus
  2. Metoprolol succ 95 mg [Concomitant]
     Indication: Tachyarrhythmia
  3. Metoprolol succ 95 mg [Concomitant]
     Indication: Hypertension
  4. CANDESARTAN [Concomitant]
     Active Substance: CANDESARTAN
     Indication: Hypertension
  5. L-Thyroxin 125 mcg [Concomitant]
     Indication: Autoimmune thyroiditis
  6. L-Thyroxin 100 mcg [Concomitant]
     Indication: Autoimmune thyroiditis
  7. ASS 100 protect [Concomitant]
     Indication: Product used for unknown indication
  8. MAGNESIUM 400 [Concomitant]
     Indication: Product used for unknown indication
     Dosage: 1 TABLET/DAY
  9. Folic acid 600 mcg [Concomitant]
     Indication: Product used for unknown indication
     Dosage: 1 TABLET/DAY
  10. Vitamine B1 4.2 mg [Concomitant]
     Indication: Product used for unknown indication
     Dosage: 1 TABLET/DAY
  11. Vitamine B6 5.0 mg [Concomitant]
     Indication: Product used for unknown indication
     Dosage: 1 TABLET/DAY
  12. Vitamine B12 5.0 mcg [Concomitant]
     Indication: Product used for unknown indication
     Dosage: 1 TABLET/DAY

REACTIONS (2)
  - Breast cancer [Recovered/Resolved]
  - Breast cancer [Recovered/Resolved]

NARRATIVE: CASE EVENT DATE: 20220101
